FAERS Safety Report 16482844 (Version 5)
Quarter: 2022Q2

REPORT INFORMATION
  Report Type: Spontaneous
  Country: PL (occurrence: PL)
  Receive Date: 20190627
  Receipt Date: 20220509
  Transmission Date: 20220721
  Serious: Yes (Hospitalization, Other)
  Sender: FDA-Public Use
  Company Number: PL-AUROBINDO-AUR-APL-2019-035777

PATIENT
  Age: 52 Year
  Sex: Male

DRUGS (10)
  1. DARUNAVIR [Suspect]
     Active Substance: DARUNAVIR
     Indication: HIV infection
     Dosage: 800 MILLIGRAM, ONCE A DAY
     Route: 065
  2. DARUNAVIR [Suspect]
     Active Substance: DARUNAVIR
     Indication: Antiretroviral therapy
  3. EMTRICITABINE\TENOFOVIR DISOPROXIL [Suspect]
     Active Substance: EMTRICITABINE\TENOFOVIR DISOPROXIL
     Indication: HIV infection
     Dosage: UNK, ONCE A DAY (QD)
     Route: 065
  4. RITONAVIR [Suspect]
     Active Substance: RITONAVIR
     Indication: Antiretroviral therapy
     Dosage: 100 MILLIGRAM, ONCE A DAY
     Route: 065
  5. RITONAVIR [Suspect]
     Active Substance: RITONAVIR
     Indication: HIV infection
  6. TENOFOVIR DISOPROXIL [Suspect]
     Active Substance: TENOFOVIR DISOPROXIL
     Indication: Antiretroviral therapy
     Dosage: 300MILLIGRAM, ONCE A DAY
     Route: 065
  7. TENOFOVIR DISOPROXIL [Suspect]
     Active Substance: TENOFOVIR DISOPROXIL
     Indication: HIV infection
  8. LAMIVUDINE AND ZIDOVUDINE [Suspect]
     Active Substance: LAMIVUDINE\ZIDOVUDINE
     Indication: Antiretroviral therapy
     Dosage: 900 MILLIGRAM, DAILY (150/300 MG TWICE A DAY, 0.5/DAY TWICE A DAY)
     Route: 065
  9. LAMIVUDINE AND ZIDOVUDINE [Suspect]
     Active Substance: LAMIVUDINE\ZIDOVUDINE
     Indication: HIV infection
  10. ATAZANAVIR [Concomitant]
     Active Substance: ATAZANAVIR
     Indication: HIV infection
     Dosage: 300 MILLIGRAM
     Route: 065

REACTIONS (15)
  - Relapsing fever [Recovered/Resolved]
  - Cranial nerve palsies multiple [Recovered/Resolved]
  - Headache [Recovered/Resolved]
  - Immune reconstitution inflammatory syndrome [Recovered/Resolved]
  - Confusional state [Recovered/Resolved]
  - Encephalitis [Recovered/Resolved]
  - Nervous system disorder [Recovered/Resolved]
  - Cerebellar syndrome [Recovered/Resolved]
  - Psychomotor retardation [Recovered/Resolved]
  - Facial paralysis [Recovered/Resolved]
  - Hyperproteinaemia [Recovered/Resolved]
  - Pathogen resistance [Recovered/Resolved]
  - Pleocytosis [Recovered/Resolved]
  - VIIIth nerve injury [Recovered/Resolved]
  - Vth nerve injury [Recovered/Resolved]
